FAERS Safety Report 9170155 (Version 1)
Quarter: 2013Q1

REPORT INFORMATION
  Report Type: Spontaneous
  Country: US (occurrence: None)
  Receive Date: 20130312
  Receipt Date: 20130312
  Transmission Date: 20140127
  Serious: No
  Sender: FDA-Public Use
  Company Number: 1303GEO003385

PATIENT
  Age: 40 Year
  Sex: Female

DRUGS (1)
  1. CEDAX [Suspect]
     Indication: PROPHYLAXIS
     Route: 048
     Dates: start: 201210, end: 201210

REACTIONS (1)
  - Diarrhoea [None]
